FAERS Safety Report 5871054-0 (Version None)
Quarter: 2008Q3

REPORT INFORMATION
  Report Type: 
  Country: None (occurrence: None)
  Receive Date: 20080902
  Receipt Date: 20080819
  Transmission Date: 20090109
  Serious: Yes (Death, Hospitalization)
  Sender: FDA-Public Use
  Company Number: 2008AL003812

PATIENT
  Age: 74 Year
  Sex: Male
  Weight: 78.9259 kg

DRUGS (18)
  1. DIGOXIN [Suspect]
     Indication: CARDIAC DISORDER
     Dosage: 0.25 MG DAILY PO
     Route: 048
  2. COREG [Suspect]
     Indication: DRUG USE FOR UNKNOWN INDICATION
  3. NORVASC [Concomitant]
  4. METOPROLOL TARTRATE [Concomitant]
  5. ECTORIN EC [Concomitant]
  6. NAMENDA [Concomitant]
  7. ZOCOR [Concomitant]
  8. NYSTATIN [Concomitant]
  9. GUAIFENESIN [Concomitant]
  10. RESTORIL [Concomitant]
  11. TRAMADOL HCL [Concomitant]
  12. ARICEPT [Concomitant]
  13. HYDROXYZINE PAMOATE [Concomitant]
  14. LANTUS [Concomitant]
  15. METRONIDAZOLE [Concomitant]
  16. PROJONIX [Concomitant]
  17. COMBIVENT [Concomitant]
  18. FLORANEX [Concomitant]

REACTIONS (8)
  - ASTHENIA [None]
  - CARDIAC PACEMAKER INSERTION [None]
  - DIZZINESS [None]
  - DYSPNOEA [None]
  - PALPITATIONS [None]
  - POISONING [None]
  - RENAL FAILURE [None]
  - THERAPEUTIC AGENT TOXICITY [None]
